FAERS Safety Report 14384247 (Version 1)
Quarter: 2018Q1

REPORT INFORMATION
  Report Type: Spontaneous
  Country: DE (occurrence: DE)
  Receive Date: 20180115
  Receipt Date: 20180115
  Transmission Date: 20180509
  Serious: Yes (Hospitalization)
  Sender: FDA-Public Use
  Company Number: DE-009507513-1711DEU012130

PATIENT
  Sex: Male

DRUGS (1)
  1. FOSAVANCE [Suspect]
     Active Substance: ALENDRONATE SODIUM\CHOLECALCIFEROL
     Indication: OSTEOPOROSIS
     Route: 048

REACTIONS (2)
  - Blood gastrin increased [Recovered/Resolved]
  - Diarrhoea [Unknown]
